FAERS Safety Report 9761899 (Version 1)
Quarter: 2013Q4

REPORT INFORMATION
  Report Type: Spontaneous
  Country: US (occurrence: US)
  Receive Date: 20131216
  Receipt Date: 20131216
  Transmission Date: 20140711
  Serious: No
  Sender: FDA-Public Use
  Company Number: US-BIOGENIDEC-2013BI104051

PATIENT
  Sex: Male
  Weight: 72 kg

DRUGS (9)
  1. TECFIDERA [Suspect]
     Indication: PRODUCT USED FOR UNKNOWN INDICATION
     Route: 048
  2. TECFIDERA [Suspect]
     Indication: PRODUCT USED FOR UNKNOWN INDICATION
     Route: 048
  3. HYDROCHLOROTHIAZIDE [Concomitant]
  4. LIPITOR [Concomitant]
  5. XANAX [Concomitant]
  6. VITAMIN D [Concomitant]
  7. TRAMADOL HCL [Concomitant]
  8. ALEVE [Concomitant]
  9. VITAMIN D [Concomitant]

REACTIONS (2)
  - Mobility decreased [Unknown]
  - Feeling hot [Unknown]
